FAERS Safety Report 9332558 (Version 2)
Quarter: 2013Q3

REPORT INFORMATION
  Report Type: Spontaneous
  Country: BE (occurrence: BE)
  Receive Date: 20130606
  Receipt Date: 20130814
  Transmission Date: 20140515
  Serious: Yes (Hospitalization)
  Sender: FDA-Public Use
  Company Number: BE-009507513-1305BEL017486

PATIENT
  Age: 56 Year
  Sex: Female

DRUGS (6)
  1. COSOPT [Suspect]
     Route: 047
  2. AZARGA [Suspect]
     Indication: GLAUCOMA
     Dosage: UNK, BID
     Dates: start: 20120418, end: 20130406
  3. GELTIM LP [Suspect]
     Dosage: UNK, BID
     Dates: start: 20111219
  4. NASONEX [Concomitant]
     Dosage: TOTAL DAILY DOSE: 2 PUFFS
  5. MEDROL [Concomitant]
     Dosage: UNK, QD
  6. PARACODINE (DIHYDROCODEINE BITARTRATE) [Concomitant]

REACTIONS (5)
  - Pneumonia [Recovered/Resolved]
  - Asthma [Recovered/Resolved]
  - Respiratory tract infection [Recovered/Resolved]
  - Renal impairment [Recovered/Resolved]
  - Hepatic function abnormal [Recovered/Resolved]
